FAERS Safety Report 6650160 (Version 3)
Quarter: 2014Q3

REPORT INFORMATION
  Report Type: Spontaneous
  Country: US (occurrence: US)
  Receive Date: 20080528
  Receipt Date: 20140728
  Transmission Date: 20150326
  Serious: Yes (Other)
  Sender: FDA-Public Use
  Company Number: US-RANBAXY-2008US-15364

PATIENT

DRUGS (3)
  1. ISOTRETINOIN [Suspect]
     Active Substance: ISOTRETINOIN
     Indication: ACNE
     Dosage: 40 MG, QD
     Dates: start: 200603, end: 200805
  2. ADVIL [Suspect]
     Active Substance: IBUPROFEN
     Indication: PRODUCT USED FOR UNKNOWN INDICATION
  3. ISOTRETINOIN [Suspect]
     Active Substance: ISOTRETINOIN
     Indication: ACNE
     Dosage: 30 MG, BID
     Dates: start: 20080429

REACTIONS (7)
  - Nausea [Unknown]
  - Influenza [Unknown]
  - Asthma [Unknown]
  - Amnesia [Unknown]
  - Suicidal ideation [Unknown]
  - Headache [Unknown]
  - Crying [Unknown]

NARRATIVE: CASE EVENT DATE: 200805
